FAERS Safety Report 11240088 (Version 3)
Quarter: 2020Q4

REPORT INFORMATION
  Report Type: Spontaneous
  Country: US (occurrence: US)
  Receive Date: 20150706
  Receipt Date: 20201211
  Transmission Date: 20210113
  Serious: Yes (Other)
  Sender: FDA-Public Use
  Company Number: US-PFIZER INC-2015221573

PATIENT
  Age: 54 Year
  Sex: Female

DRUGS (4)
  1. PREDNISONE. [Concomitant]
     Active Substance: PREDNISONE
     Dosage: 5 MG
     Dates: start: 201501
  2. XELJANZ [Suspect]
     Active Substance: TOFACITINIB CITRATE
     Indication: RHEUMATOID ARTHRITIS
     Dosage: 5 MG, 2X/DAY
     Dates: start: 201503, end: 20150629
  3. XELJANZ [Suspect]
     Active Substance: TOFACITINIB CITRATE
     Dosage: 5 MG, 2X/DAY
     Dates: start: 201503, end: 20150629
  4. XELJANZ [Suspect]
     Active Substance: TOFACITINIB CITRATE
     Dosage: 5 MG
     Dates: start: 20201106, end: 20201125

REACTIONS (6)
  - Respiratory tract congestion [Unknown]
  - Infection [Not Recovered/Not Resolved]
  - Respiratory tract infection [Unknown]
  - Dyspnoea [Unknown]
  - Disease recurrence [Unknown]
  - Vision blurred [Unknown]

NARRATIVE: CASE EVENT DATE: 20150618
